FAERS Safety Report 18505195 (Version 1)
Quarter: 2020Q4

REPORT INFORMATION
  Report Type: Spontaneous
  Country: US (occurrence: US)
  Receive Date: 20201116
  Receipt Date: 20201116
  Transmission Date: 20210114
  Serious: Yes (Hospitalization, Other)
  Sender: FDA-Public Use
  Company Number: US-009507513-2011USA007139

PATIENT
  Age: 82 Year
  Sex: Male
  Weight: 70.3 kg

DRUGS (22)
  1. PRINIVIL [Concomitant]
     Active Substance: LISINOPRIL
     Dosage: QAM
  2. CENTRUM SILVER [Concomitant]
     Active Substance: MINERALS\VITAMINS
     Dosage: 1 DOSAGE FORM, QD
  3. SEROQUEL [Suspect]
     Active Substance: QUETIAPINE FUMARATE
     Indication: TRANSIENT ISCHAEMIC ATTACK
  4. CARAFATE [Concomitant]
     Active Substance: SUCRALFATE
     Dosage: 3 GRAM DAILY;
  5. ZOCOR [Concomitant]
     Active Substance: SIMVASTATIN
     Dosage: 40 MILLIGRAM DAILY;
  6. OMEPRAZOLE. [Concomitant]
     Active Substance: OMEPRAZOLE
     Dosage: 40 MILLIGRAM DAILY
  7. SEROQUEL [Concomitant]
     Active Substance: QUETIAPINE FUMARATE
     Dosage: 150 MILLIGRAM
  8. PRINIVIL [Suspect]
     Active Substance: LISINOPRIL
     Indication: CARDIAC DISORDER
     Dosage: 5 MILLIGRAM, QD
     Route: 048
  9. OMEPRAZOLE. [Suspect]
     Active Substance: OMEPRAZOLE
     Indication: GASTRIC DISORDER
     Dosage: 40 MILLIGRAM, QD
     Route: 048
  10. KADIAN [Concomitant]
     Active Substance: MORPHINE SULFATE
     Dosage: 60 MILLIGRAM DAILY;
  11. KRISTALOSE [Concomitant]
     Active Substance: LACTULOSE
     Dosage: 40 MILLIGRAM DAILY;
  12. ASPIRIN. [Concomitant]
     Active Substance: ASPIRIN
     Dosage: 81 MILLIGRAM DAILY;
  13. METOCLOPRAMIDE. [Suspect]
     Active Substance: METOCLOPRAMIDE
     Indication: GASTRIC DISORDER
     Dosage: 10 MILLIGRAM
     Dates: start: 201205
  14. TOPROL XL [Concomitant]
     Active Substance: METOPROLOL SUCCINATE
     Dosage: 50 MILLIGRAM
  15. PHENERGAN [Concomitant]
     Active Substance: PROMETHAZINE HYDROCHLORIDE
     Dosage: PRN
  16. PRILOSEC [Concomitant]
     Active Substance: OMEPRAZOLE MAGNESIUM
  17. SEROQUEL [Suspect]
     Active Substance: QUETIAPINE FUMARATE
     Indication: AFFECTIVE DISORDER
     Dosage: 50 MILLIGRAM, QD
     Route: 048
     Dates: start: 201304
  18. HYDROXYZINE [Concomitant]
     Active Substance: HYDROXYZINE HYDROCHLORIDE
     Dosage: 50 MILLIGRAM
  19. CALTRATE WITH VITAMIN D [Concomitant]
     Active Substance: CALCIUM CARBONATE\CHOLECALCIFEROL
     Dosage: 600 MILLIGRAM DAILY;
  20. ERGOCALCIFEROL. [Concomitant]
     Active Substance: ERGOCALCIFEROL
     Dosage: 2000 IU (INTERNATIONAL UNIT) DAILY;
  21. SEROQUEL [Suspect]
     Active Substance: QUETIAPINE FUMARATE
     Indication: TRANSIENT ISCHAEMIC ATTACK
     Dosage: 150 MILLIGRAM, QD
     Route: 048
     Dates: end: 201304
  22. SEROQUEL [Suspect]
     Active Substance: QUETIAPINE FUMARATE
     Indication: AFFECTIVE DISORDER

REACTIONS (23)
  - Nausea [Unknown]
  - Diarrhoea [Unknown]
  - Tremor [Unknown]
  - Grunting [Unknown]
  - Pyrexia [Recovering/Resolving]
  - Pneumonia [Recovering/Resolving]
  - Lack of spontaneous speech [Unknown]
  - Choking [Unknown]
  - Feeding disorder [Unknown]
  - Muscle spasms [Unknown]
  - Delirium [Recovering/Resolving]
  - Muscle twitching [Unknown]
  - Facial spasm [Unknown]
  - Abdominal distension [Recovering/Resolving]
  - Dyskinesia [Unknown]
  - Suicidal ideation [Unknown]
  - Renal failure [Unknown]
  - Abdominal pain [Recovering/Resolving]
  - Ileus [Recovering/Resolving]
  - Weight decreased [Recovering/Resolving]
  - Mental status changes [Recovering/Resolving]
  - Gastrooesophageal reflux disease [Unknown]
  - Vomiting [Recovering/Resolving]

NARRATIVE: CASE EVENT DATE: 201205
